FAERS Safety Report 11916423 (Version 1)
Quarter: 2016Q1

REPORT INFORMATION
  Report Type: Spontaneous
  Country: GB (occurrence: GB)
  Receive Date: 20160114
  Receipt Date: 20160114
  Transmission Date: 20160526
  Serious: Yes (Other)
  Sender: FDA-Public Use
  Company Number: GB-PFIZER INC-2016008114

PATIENT
  Age: 53 Year
  Sex: Female
  Weight: 54 kg

DRUGS (3)
  1. GABAPENTIN. [Concomitant]
     Active Substance: GABAPENTIN
     Dosage: UNK
  2. PREGABALIN. [Suspect]
     Active Substance: PREGABALIN
     Indication: BACK PAIN
     Dosage: 75 MG, 2X/DAY
     Route: 048
     Dates: start: 20151231, end: 20160102
  3. NAPROXEN. [Concomitant]
     Active Substance: NAPROXEN
     Dosage: UNK

REACTIONS (9)
  - Dizziness [Unknown]
  - Pyrexia [Unknown]
  - Dysgraphia [Recovered/Resolved with Sequelae]
  - Asthenia [Unknown]
  - Suicidal ideation [Not Recovered/Not Resolved]
  - Paraesthesia [Not Recovered/Not Resolved]
  - Somnolence [Not Recovered/Not Resolved]
  - Visual impairment [Unknown]
  - Abdominal distension [Unknown]

NARRATIVE: CASE EVENT DATE: 20151231
